FAERS Safety Report 9553385 (Version 2)
Quarter: 2013Q3

REPORT INFORMATION
  Report Type: Spontaneous
  Country: US (occurrence: US)
  Receive Date: 20130925
  Receipt Date: 20130925
  Transmission Date: 20140515
  Serious: Yes (Other)
  Sender: FDA-Public Use
  Company Number: US-ASTRAZENECA-2013SE55057

PATIENT
  Age: 27984 Day
  Sex: Male
  Weight: 81.6 kg

DRUGS (10)
  1. BRILINTA [Suspect]
     Indication: ACUTE CORONARY SYNDROME
     Route: 048
     Dates: start: 20130712, end: 20130714
  2. BRILINTA [Suspect]
     Indication: CORONARY ARTERY STENOSIS
     Route: 048
     Dates: start: 20130712, end: 20130714
  3. BRILINTA [Suspect]
     Indication: ANTIPLATELET THERAPY
     Route: 048
     Dates: start: 20130712, end: 20130714
  4. BRILINTA [Suspect]
     Indication: STENT PLACEMENT
     Route: 048
     Dates: start: 20130712, end: 20130714
  5. PRILOSEC [Suspect]
     Route: 048
  6. LISINOPRIL [Suspect]
     Route: 048
  7. PLAVIX [Concomitant]
  8. LOVASTATIN [Concomitant]
     Route: 048
  9. BABY ASPIRIN [Concomitant]
     Route: 048
  10. ACE INHIBITOR [Concomitant]

REACTIONS (9)
  - Coronary artery stenosis [Unknown]
  - Coronary artery disease [Unknown]
  - Epistaxis [Recovered/Resolved]
  - Bundle branch block right [Unknown]
  - Dyspnoea [Recovered/Resolved]
  - Cough [Recovered/Resolved]
  - Hypertension [Unknown]
  - Hyperlipidaemia [Unknown]
  - Blood cholesterol increased [Unknown]
